FAERS Safety Report 11400942 (Version 5)
Quarter: 2015Q4

REPORT INFORMATION
  Report Type: Spontaneous
  Country: US (occurrence: US)
  Receive Date: 20150820
  Receipt Date: 20151007
  Transmission Date: 20160304
  Serious: Yes (Hospitalization, Other)
  Sender: FDA-Public Use
  Company Number: US-JNJFOC-20150813886

PATIENT
  Age: 57 Year
  Sex: Male
  Weight: 103 kg

DRUGS (2)
  1. IMBRUVICA [Suspect]
     Active Substance: IBRUTINIB
     Indication: WALDENSTROM^S MACROGLOBULINAEMIA
     Route: 048
     Dates: start: 20150701, end: 20150810
  2. ACYCLOVIR. [Concomitant]
     Active Substance: ACYCLOVIR
     Route: 048
     Dates: start: 201501

REACTIONS (5)
  - Myocardial infarction [Unknown]
  - Cardiomyopathy [Unknown]
  - Seizure [Unknown]
  - Ventricular fibrillation [Unknown]
  - Myocarditis [Unknown]

NARRATIVE: CASE EVENT DATE: 2015
